FAERS Safety Report 13489881 (Version 2)
Quarter: 2017Q2

REPORT INFORMATION
  Report Type: Spontaneous
  Country: FR (occurrence: FR)
  Receive Date: 20170426
  Receipt Date: 20170602
  Transmission Date: 20170830
  Serious: Yes (Other)
  Sender: FDA-Public Use
  Company Number: FR-009507513-1704FRA008731

PATIENT
  Age: 75 Year
  Sex: Female

DRUGS (1)
  1. FOSAVANCE [Suspect]
     Active Substance: ALENDRONATE SODIUM\CHOLECALCIFEROL
     Indication: OSTEOPOROSIS
     Dosage: 1 TABLET, QW IN THE MORNING IN FASTED CONDITION
     Route: 048
     Dates: start: 20151018, end: 20170224

REACTIONS (9)
  - Insomnia [Unknown]
  - Balance disorder [Unknown]
  - Tooth loss [Unknown]
  - Pulpitis dental [Not Recovered/Not Resolved]
  - Dental pulp disorder [Unknown]
  - Abasia [Unknown]
  - Pain in extremity [Not Recovered/Not Resolved]
  - Bone pain [Not Recovered/Not Resolved]
  - Periodontitis [Unknown]

NARRATIVE: CASE EVENT DATE: 201612
